FAERS Safety Report 25406966 (Version 2)
Quarter: 2025Q2

REPORT INFORMATION
  Report Type: Spontaneous
  Country: BG (occurrence: BG)
  Receive Date: 20250606
  Receipt Date: 20250625
  Transmission Date: 20250717
  Serious: Yes (Life-Threatening)
  Sender: BRISTOL-MYERS SQUIBB COMPANY
  Company Number: BG-BRISTOL-MYERS SQUIBB COMPANY-2025-080421

PATIENT
  Age: 61 Year
  Sex: Female
  Weight: 80 kg

DRUGS (3)
  1. ELIQUIS [Suspect]
     Active Substance: APIXABAN
     Indication: Pulmonary embolism
     Dates: start: 202401, end: 202401
  2. ELIQUIS [Suspect]
     Active Substance: APIXABAN
     Dates: start: 202401, end: 202506
  3. ELIQUIS [Suspect]
     Active Substance: APIXABAN
     Dates: start: 20240401

REACTIONS (1)
  - Disease recurrence [Recovering/Resolving]

NARRATIVE: CASE EVENT DATE: 20241101
